FAERS Safety Report 24208318 (Version 2)
Quarter: 2024Q3

REPORT INFORMATION
  Report Type: Report from Study
  Country: US (occurrence: US)
  Receive Date: 20240814
  Receipt Date: 20240830
  Transmission Date: 20241017
  Serious: Yes (Hospitalization, Other)
  Sender: GILEAD
  Company Number: US-GILEAD-2024-0681692

PATIENT
  Age: 50 Year
  Sex: Female

DRUGS (4)
  1. AMBRISENTAN [Suspect]
     Active Substance: AMBRISENTAN
     Indication: Pulmonary arterial hypertension
     Dosage: 10 MG, QD
     Route: 065
     Dates: start: 20210628
  2. ORENITRAM [Concomitant]
     Active Substance: TREPROSTINIL
     Dosage: UNK
  3. ADCIRCA [Concomitant]
     Active Substance: TADALAFIL
     Dosage: UNK
  4. DILTIAZEM [Concomitant]
     Active Substance: DILTIAZEM

REACTIONS (2)
  - Sickle cell anaemia with crisis [Unknown]
  - Oxygen saturation decreased [Unknown]

NARRATIVE: CASE EVENT DATE: 20240731
